FAERS Safety Report 24428605 (Version 1)
Quarter: 2024Q4

REPORT INFORMATION
  Report Type: Spontaneous
  Country: US (occurrence: None)
  Receive Date: 20241011
  Receipt Date: 20241011
  Transmission Date: 20250115
  Serious: Yes (Hospitalization)
  Sender: Public
  Company Number: None

PATIENT
  Sex: Male

DRUGS (3)
  1. TASIGNA [Suspect]
     Active Substance: NILOTINIB
     Dosage: FREQUENCY : TWICE A DAY;?
     Route: 048
     Dates: start: 202201
  2. XARELTO [Concomitant]
  3. BACTRIM [Concomitant]

REACTIONS (5)
  - Deep vein thrombosis [None]
  - Malaise [None]
  - Nausea [None]
  - Asthenia [None]
  - Diarrhoea [None]
